FAERS Safety Report 13444964 (Version 1)
Quarter: 2017Q2

REPORT INFORMATION
  Report Type: Report from Study
  Country: FR (occurrence: FR)
  Receive Date: 20170414
  Receipt Date: 20170414
  Transmission Date: 20170830
  Serious: Yes (Hospitalization, Disabling, Other)
  Sender: FDA-Public Use
  Company Number: PHHY2014FR148708

PATIENT
  Age: 54 Year
  Sex: Male

DRUGS (11)
  1. MYFORTIC [Suspect]
     Active Substance: MYCOPHENOLATE SODIUM
     Indication: LIVER TRANSPLANT
     Dosage: 720 MG, QD
     Route: 065
     Dates: start: 20140312
  2. MYFORTIC [Suspect]
     Active Substance: MYCOPHENOLATE SODIUM
     Indication: PROPHYLAXIS AGAINST TRANSPLANT REJECTION
  3. CORTANCYL [Suspect]
     Active Substance: PREDNISONE
     Indication: IMMUNOSUPPRESSION
  4. ADVAGRAF [Suspect]
     Active Substance: TACROLIMUS
     Indication: PROPHYLAXIS AGAINST TRANSPLANT REJECTION
     Dosage: 2 MG, QD
     Route: 065
     Dates: start: 20141015, end: 20150109
  5. CORTANCYL [Suspect]
     Active Substance: PREDNISONE
     Indication: PROPHYLAXIS AGAINST TRANSPLANT REJECTION
     Dosage: 5 MG, QD
     Route: 065
     Dates: start: 20140401
  6. ADVAGRAF [Suspect]
     Active Substance: TACROLIMUS
     Dosage: 4 MG, QD
     Route: 065
     Dates: start: 20150515, end: 20160415
  7. CERTICAN [Suspect]
     Active Substance: EVEROLIMUS
     Indication: IMMUNOSUPPRESSION
     Dosage: 6 MG, UNK
     Route: 048
     Dates: start: 20140923, end: 20141014
  8. MYFORTIC [Suspect]
     Active Substance: MYCOPHENOLATE SODIUM
     Indication: IMMUNOSUPPRESSION
  9. ADVAGRAF [Suspect]
     Active Substance: TACROLIMUS
     Dosage: 5 MG, QD
     Route: 065
     Dates: start: 20160416
  10. ADVAGRAF [Suspect]
     Active Substance: TACROLIMUS
     Indication: IMMUNOSUPPRESSION
     Dosage: 3 MG, QD
     Route: 065
     Dates: start: 20150110, end: 20150515
  11. CERTICAN [Suspect]
     Active Substance: EVEROLIMUS
     Indication: PROPHYLAXIS AGAINST TRANSPLANT REJECTION
     Dosage: 8 MG, QD
     Route: 048
     Dates: start: 20140430, end: 20140922

REACTIONS (4)
  - Diabetes mellitus [Not Recovered/Not Resolved]
  - Microalbuminuria [Recovered/Resolved with Sequelae]
  - Weight increased [Not Recovered/Not Resolved]
  - Microalbuminuria [Not Recovered/Not Resolved]

NARRATIVE: CASE EVENT DATE: 20140331
